FAERS Safety Report 12592360 (Version 1)
Quarter: 2016Q3

REPORT INFORMATION
  Report Type: Spontaneous
  Country: US (occurrence: None)
  Receive Date: 20160725
  Receipt Date: 20160725
  Transmission Date: 20161109
  Serious: Yes (Life-Threatening, Hospitalization)
  Sender: FDA-Public Use
  Company Number: None

PATIENT
  Age: 76 Year
  Sex: Male
  Weight: 77.11 kg

DRUGS (1)
  1. DECITABINE. [Suspect]
     Active Substance: DECITABINE
     Indication: ACUTE MYELOID LEUKAEMIA
     Dosage: 40 MG  DAYS 1-5 (4WK CYCLE  INTRAVENOUS DRIP
     Route: 041
     Dates: start: 20160620, end: 20160624

REACTIONS (4)
  - Dysarthria [None]
  - Paraesthesia [None]
  - Facial paralysis [None]
  - Pain in extremity [None]

NARRATIVE: CASE EVENT DATE: 20160722
